FAERS Safety Report 6042171-X (Version None)
Quarter: 2009Q1

REPORT INFORMATION
  Report Type: 
  Country: None (occurrence: None)
  Receive Date: 20090116
  Receipt Date: 20090107
  Transmission Date: 20090719
  Serious: Yes (Hospitalization)
  Sender: FDA-Public Use
  Company Number: PHHY2007MX00452

PATIENT
  Sex: Female

DRUGS (4)
  1. ZELMAC [Suspect]
     Indication: IRRITABLE BOWEL SYNDROME
     Dosage: UNK, UNK
     Route: 048
     Dates: start: 20071001, end: 20071101
  2. NEXIUM [Concomitant]
     Indication: IRRITABLE BOWEL SYNDROME
     Dosage: 40 MG UNK
  3. PINUVERIUM [Concomitant]
     Dosage: 100 MG UNK
  4. PLIDAN [Concomitant]

REACTIONS (5)
  - CHOLELITHIASIS [None]
  - FALL [None]
  - HIP FRACTURE [None]
  - UPPER LIMB FRACTURE [None]
  - WRIST FRACTURE [None]
